FAERS Safety Report 17203353 (Version 1)
Quarter: 2019Q4

REPORT INFORMATION
  Report Type: Spontaneous
  Country: US (occurrence: US)
  Receive Date: 20191226
  Receipt Date: 20191226
  Transmission Date: 20200122
  Serious: Yes (Other)
  Sender: FDA-Public Use
  Company Number: US-ASTRAZENECA-2019SF87457

PATIENT
  Age: 72 Year
  Sex: Male

DRUGS (2)
  1. LYNPARZA [Suspect]
     Active Substance: OLAPARIB
     Indication: PANCREATIC CARCINOMA
     Dosage: UNK
     Route: 048
     Dates: start: 201906
  2. LYNPARZA [Suspect]
     Active Substance: OLAPARIB
     Indication: METASTASES TO LIVER
     Dosage: UNK
     Route: 048
     Dates: start: 201906

REACTIONS (4)
  - Ulcer haemorrhage [Unknown]
  - Product use in unapproved indication [Unknown]
  - Full blood count decreased [Recovered/Resolved]
  - Ascites [Not Recovered/Not Resolved]

NARRATIVE: CASE EVENT DATE: 2019
